FAERS Safety Report 21820944 (Version 1)
Quarter: 2023Q1

REPORT INFORMATION
  Report Type: Spontaneous
  Country: NL (occurrence: NL)
  Receive Date: 20230105
  Receipt Date: 20230105
  Transmission Date: 20230417
  Serious: Yes (Hospitalization, Disabling)
  Sender: FDA-Public Use
  Company Number: None

PATIENT
  Sex: Male
  Weight: 71 kg

DRUGS (3)
  1. CARBOPLATIN [Suspect]
     Active Substance: CARBOPLATIN
     Indication: Non-small cell lung cancer
     Dosage: 670, INFOPL CONC. BRAND NAME NOT SPECIFIED
     Route: 065
     Dates: start: 20221117, end: 20221215
  2. PEMETREXED [Concomitant]
     Active Substance: PEMETREXED
     Indication: Product used for unknown indication
     Dosage: INTRAVENOUS DRIP, 1 MG/MG (MILLIGRAM PER MILLIGRAM), BRAND NAME NOT SPECIFIED
     Route: 065
  3. PEMBROLIZUMAB [Concomitant]
     Active Substance: PEMBROLIZUMAB
     Indication: Product used for unknown indication
     Dosage: INTRAVENOUS DRIP, 1 MG/MG (MILLIGRAM PER MILLIGRAM), BRAND NAME NOT SPECIFIED
     Route: 065

REACTIONS (1)
  - Demyelinating polyneuropathy [Not Recovered/Not Resolved]
